FAERS Safety Report 16268313 (Version 3)
Quarter: 2019Q2

REPORT INFORMATION
  Report Type: Spontaneous
  Country: US (occurrence: US)
  Receive Date: 20190503
  Receipt Date: 20190510
  Transmission Date: 20190711
  Serious: Yes (Other)
  Sender: FDA-Public Use
  Company Number: US-SA-2019SA118004

PATIENT
  Age: 72 Year
  Sex: Male

DRUGS (6)
  1. PRASUGREL. [Suspect]
     Active Substance: PRASUGREL
     Dosage: 60 MG, BID LOADING DOSES 12 HOURS APART
  2. PRASUGREL. [Suspect]
     Active Substance: PRASUGREL
     Dosage: 20 MG, QD
  3. CLOPIDOGREL BISULFATE. [Suspect]
     Active Substance: CLOPIDOGREL BISULFATE
     Dosage: UNK, UNK
  4. TICAGRELOR. [Suspect]
     Active Substance: TICAGRELOR
     Dosage: UNK, UNK
  5. PRASUGREL. [Suspect]
     Active Substance: PRASUGREL
     Dosage: 10 MG, QD
  6. PRASUGREL. [Suspect]
     Active Substance: PRASUGREL
     Dosage: 60 MG RELOADED

REACTIONS (5)
  - Acute myocardial infarction [Unknown]
  - Platelet function test abnormal [Unknown]
  - Peripheral ischaemia [Recovered/Resolved]
  - Vascular stent thrombosis [Unknown]
  - Platelet disorder [Unknown]
